FAERS Safety Report 9271961 (Version 2)
Quarter: 2013Q2

REPORT INFORMATION
  Report Type: Report from Study
  Country: US (occurrence: US)
  Receive Date: 20130506
  Receipt Date: 20130617
  Transmission Date: 20140414
  Serious: Yes (Hospitalization)
  Sender: FDA-Public Use
  Company Number: US-ACTELION-A-NJ2013-82686

PATIENT
  Age: 50 Year
  Sex: Male

DRUGS (3)
  1. TRACLEER [Suspect]
     Indication: PULMONARY ARTERIAL HYPERTENSION
     Dosage: UNK
     Route: 048
     Dates: start: 20120305
  2. TRACLEER [Suspect]
     Dosage: UNK
     Route: 048
  3. COUMADIN [Concomitant]

REACTIONS (1)
  - Haemorrhage [Recovering/Resolving]
